FAERS Safety Report 4653652-5 (Version None)
Quarter: 2005Q2

REPORT INFORMATION
  Report Type: 
  Country: None (occurrence: None)
  Receive Date: 20050505
  Receipt Date: 20050418
  Transmission Date: 20051028
  Serious: Yes (Other)
  Sender: FDA-Public Use
  Company Number: JP-JNJFOC-20050404756

PATIENT
  Age: 55 Year
  Sex: Male

DRUGS (6)
  1. ITRIZOLE [Suspect]
     Indication: PNEUMONIA ASPERGILLUS
     Route: 049
  2. PREDNISOLONE [Interacting]
     Indication: DRUG USE FOR UNKNOWN INDICATION
     Route: 049
  3. MYCOPHENOLATE MOFETIL [Concomitant]
  4. LANSOPRAZOLE [Concomitant]
  5. ACYCLOVIR [Concomitant]
  6. TRIMETHOPRIM [Concomitant]

REACTIONS (4)
  - DELIRIUM [None]
  - DRUG INTERACTION [None]
  - RENAL DISORDER [None]
  - RESTLESSNESS [None]
